FAERS Safety Report 23814655 (Version 2)
Quarter: 2024Q2

REPORT INFORMATION
  Report Type: Report from Study
  Country: US (occurrence: US)
  Receive Date: 20240503
  Receipt Date: 20240523
  Transmission Date: 20240715
  Serious: Yes (Hospitalization, Other)
  Sender: FDA-Public Use
  Company Number: US-BAXTER-2024BAX017315

PATIENT
  Age: 77 Year
  Sex: Female
  Weight: 103.87 kg

DRUGS (42)
  1. CYCLOPHOSPHAMIDE [Suspect]
     Active Substance: CYCLOPHOSPHAMIDE
     Indication: Diffuse large B-cell lymphoma
     Dosage: 1650 MG, EVERY 3 WEEKS
     Route: 042
     Dates: start: 20240409
  2. DOXORUBICIN [Suspect]
     Active Substance: DOXORUBICIN
     Indication: Diffuse large B-cell lymphoma
     Dosage: 55 MG, EVERY 3 WEEKS
     Route: 042
     Dates: start: 20240409
  3. EPCORITAMAB [Suspect]
     Active Substance: EPCORITAMAB
     Indication: Diffuse large B-cell lymphoma
     Dosage: UNK
     Route: 065
  4. RITUXIMAB [Suspect]
     Active Substance: RITUXIMAB
     Indication: Diffuse large B-cell lymphoma
     Dosage: 825 MG, EVERY 3 WEEKS, ONGOING
     Route: 042
     Dates: start: 20240409
  5. VINCRISTINE [Suspect]
     Active Substance: VINCRISTINE
     Indication: Diffuse large B-cell lymphoma
     Dosage: 2 MG, EVERY 3 WEEKS, ONGOING
     Route: 042
     Dates: start: 20040409
  6. PREDNISONE [Suspect]
     Active Substance: PREDNISONE
     Indication: Diffuse large B-cell lymphoma
     Dosage: 100 MG C1-6, D1-5, EVERY 1 DAYS, ONGOING
     Route: 048
     Dates: start: 20240409
  7. DIAZEPAM [Concomitant]
     Active Substance: DIAZEPAM
     Indication: Prophylaxis
     Dosage: 5 MG, AS NECESSARY
     Route: 065
     Dates: start: 20240404
  8. PREDNISONE [Concomitant]
     Active Substance: PREDNISONE
     Indication: Rheumatoid arthritis
     Dosage: 20 MG, EVERY 1 DAYS
     Route: 065
     Dates: start: 20240329
  9. BACLOFEN [Concomitant]
     Active Substance: BACLOFEN
     Indication: Muscle spasms
     Dosage: 10 MG, AS NECESSARY, START DATE: MAY-2019
     Route: 065
  10. LANSOPRAZOLE [Concomitant]
     Active Substance: LANSOPRAZOLE
     Indication: Gastrooesophageal reflux disease
     Dosage: 30 MG, EVERY ONE DAYS
     Route: 065
     Dates: start: 20210110
  11. EPINEPHRINE [Concomitant]
     Active Substance: EPINEPHRINE
     Indication: Hypersensitivity
     Dosage: 0.3 MG, AS NECESSARY, START DATE: DEC-2020
     Route: 065
  12. LEVOTHYROXINE [Concomitant]
     Active Substance: LEVOTHYROXINE\LEVOTHYROXINE SODIUM
     Indication: Hypothyroidism
     Dosage: 75 UG, EVERY 1 DAYS, START DATE: OCT-2016
     Route: 065
  13. DILTIAZEM [Concomitant]
     Active Substance: DILTIAZEM
     Indication: Hypertension
     Dosage: 240 MG, EVERY 1 DAYS, START DATE: 2017
     Route: 065
  14. HYDROCHLOROTHIAZIDE [Concomitant]
     Active Substance: HYDROCHLOROTHIAZIDE
     Indication: Hypertension
     Dosage: 25 MG, EVERY 1 DAYS, START DATE: 2019
     Route: 065
  15. LOSARTAN [Concomitant]
     Active Substance: LOSARTAN
     Indication: Hypertension
     Dosage: 100 MG, EVERY 1 DAYS, START DATE: 2019
     Route: 065
  16. DICYCLOMINE [Concomitant]
     Active Substance: DICYCLOMINE HYDROCHLORIDE
     Indication: Irritable bowel syndrome
     Dosage: 20 MG, AS NECESSARY, START DATE: 2019
     Route: 065
  17. PRAVASTATIN [Concomitant]
     Active Substance: PRAVASTATIN
     Indication: Hyperlipidaemia
     Dosage: 20 MG, EVERY 1 DAYS, START DATE: 2016
     Route: 065
  18. CETIRIZINE HYDROCHLORIDE [Concomitant]
     Active Substance: CETIRIZINE HYDROCHLORIDE
     Indication: Seasonal allergy
     Dosage: 10 MG, EVERY 1 DAYS, START DATE: 2015
     Route: 065
  19. FLUTICASONE [Concomitant]
     Active Substance: FLUTICASONE
     Indication: Seasonal allergy
     Dosage: 10 MG, EVERY 1 DAYS, START DATE: 2015
     Route: 065
  20. DULOXETINE [Concomitant]
     Active Substance: DULOXETINE
     Indication: Fibromyalgia
     Dosage: 60 MG, EVERY 1 DAYS, START DATE: 2013
     Route: 065
  21. MONTELUKAST [Concomitant]
     Active Substance: MONTELUKAST SODIUM
     Indication: Asthma
     Dosage: 10 MG, EVERY 1 DAYS, START DATE: 2012
     Route: 065
  22. TRAZODONE [Concomitant]
     Active Substance: TRAZODONE HYDROCHLORIDE
     Indication: Depression
     Dosage: 50 MG, EVERY 1 DAYS, START DATE: 2012
     Route: 065
  23. BUDESONIDE\FORMOTEROL [Concomitant]
     Active Substance: BUDESONIDE\FORMOTEROL
     Indication: Asthma
     Dosage: 2 PUFF, 2/DAYS, START DATE: 2012
     Route: 065
  24. APREPITANT [Concomitant]
     Active Substance: APREPITANT
     Indication: Antiemetic supportive care
     Dosage: 130 MG, AS NECESSARY
     Route: 065
     Dates: start: 20240409
  25. PALONOSETRON [Concomitant]
     Active Substance: PALONOSETRON
     Indication: Antiemetic supportive care
     Dosage: 0.25 MG, AS NECESSARY
     Route: 065
     Dates: start: 20240409
  26. DIPHENHYDRAMINE [Concomitant]
     Active Substance: DIPHENHYDRAMINE
     Indication: Prophylaxis
     Dosage: 25 MG, AS NECESSARY
     Route: 065
     Dates: start: 20240409
  27. LIDOCAINE\PRILOCAINE [Concomitant]
     Active Substance: LIDOCAINE\PRILOCAINE
     Indication: Central venous catheterisation
     Dosage: 1 APPLICATION, AS NECESSARY
     Route: 065
     Dates: start: 20240409
  28. FENTANYL [Concomitant]
     Active Substance: FENTANYL\FENTANYL CITRATE
     Indication: Back pain
     Dosage: 25 UG/H
     Route: 065
     Dates: start: 20240410
  29. FENTANYL [Concomitant]
     Active Substance: FENTANYL\FENTANYL CITRATE
     Indication: Pain in extremity
  30. MENTHOL;ZINC OXIDE [Concomitant]
     Indication: Perineal abscess
     Dosage: 1 APPLICATION, 2/DAYS
     Route: 065
     Dates: start: 20240410
  31. MENTHOL;ZINC OXIDE [Concomitant]
     Indication: Candida infection
  32. ALLOPURINOL [Concomitant]
     Active Substance: ALLOPURINOL
     Indication: Prophylaxis
     Dosage: 100 MG, EVERY 1 DAYS
     Route: 065
     Dates: start: 20240410
  33. OXYCODONE [Concomitant]
     Active Substance: OXYCODONE\OXYCODONE HYDROCHLORIDE
     Indication: Back pain
     Dosage: 5 MG, AS NECESSARY
     Route: 065
     Dates: start: 20240409
  34. OXYCODONE [Concomitant]
     Active Substance: OXYCODONE\OXYCODONE HYDROCHLORIDE
     Indication: Pain in extremity
  35. HYDROXYCHLOROQUINE [Concomitant]
     Active Substance: HYDROXYCHLOROQUINE
     Indication: Rheumatoid arthritis
     Dosage: 200 MG, EVERY 1 DAYS, START DATE: JAN-2021
     Route: 065
     Dates: end: 20240326
  36. TRAMADOL [Concomitant]
     Active Substance: TRAMADOL\TRAMADOL HYDROCHLORIDE
     Indication: Back pain
     Dosage: 50 MG, AS NECESSARY, START DATE: DEC-2020
     Route: 065
     Dates: end: 20240412
  37. NAPROXEN [Concomitant]
     Active Substance: NAPROXEN
     Indication: Back pain
     Dosage: 500 MG, AS NECESSARY, START DATE: AUG-2020
     Route: 065
     Dates: end: 20240412
  38. SSD [Concomitant]
     Active Substance: SILVER SULFADIAZINE
     Indication: Lichen planus
     Dosage: 1 APPLICATION, AS NECESSARY, START DATE: 2019
     Route: 065
     Dates: end: 20240412
  39. CERAMAX [Concomitant]
     Indication: Dermatitis
     Dosage: 1 APPLICATION, EVERY 1 DAYS, START DATE: 2020
     Route: 065
     Dates: end: 20240412
  40. PREGABALIN [Concomitant]
     Active Substance: PREGABALIN
     Indication: Fibromyalgia
     Dosage: 50 MG, 2/DAYS
     Route: 065
     Dates: start: 20220826, end: 20240412
  41. FORMOTEROL [Concomitant]
     Active Substance: FORMOTEROL
     Indication: Asthma
     Dosage: 20 UG, 2/DAY
     Route: 065
     Dates: start: 20240411, end: 20240412
  42. ACETAMINOPHEN [Concomitant]
     Active Substance: ACETAMINOPHEN
     Indication: Prophylaxis
     Dosage: 650 MG, AS NECESSARY
     Route: 065
     Dates: start: 20240409

REACTIONS (1)
  - Sepsis [Recovered/Resolved]

NARRATIVE: CASE EVENT DATE: 20240422
